FAERS Safety Report 16928484 (Version 2)
Quarter: 2019Q4

REPORT INFORMATION
  Report Type: Spontaneous
  Country: ES (occurrence: ES)
  Receive Date: 20191017
  Receipt Date: 20191120
  Transmission Date: 20200122
  Serious: Yes (Life-Threatening, Other)
  Sender: FDA-Public Use
  Company Number: ES-LUPIN PHARMACEUTICALS INC.-2019-06676

PATIENT
  Age: 31 Year
  Sex: Male

DRUGS (2)
  1. CEFTRIAXONE. [Suspect]
     Active Substance: CEFTRIAXONE
     Indication: ENDOCARDITIS
     Dosage: UNK
     Route: 065
     Dates: start: 201808
  2. CEFTRIAXONE. [Suspect]
     Active Substance: CEFTRIAXONE
     Dosage: 500 MILLIGRAM (COURSE OF DAY 7)
     Route: 065
     Dates: start: 2018

REACTIONS (9)
  - Anaphylactic reaction [Recovering/Resolving]
  - Dizziness [Unknown]
  - Erythema [Unknown]
  - Drug hypersensitivity [Recovering/Resolving]
  - Pallor [Unknown]
  - Blood pressure abnormal [Recovering/Resolving]
  - Vomiting [Unknown]
  - Hyperhidrosis [Unknown]
  - Malaise [Unknown]

NARRATIVE: CASE EVENT DATE: 2018
